FAERS Safety Report 12686949 (Version 2)
Quarter: 2016Q3

REPORT INFORMATION
  Report Type: Spontaneous
  Country: US (occurrence: US)
  Receive Date: 20160825
  Receipt Date: 20160929
  Transmission Date: 20161109
  Serious: No
  Sender: FDA-Public Use
  Company Number: US-JAZZ-2016-US-007168

PATIENT
  Sex: Female

DRUGS (28)
  1. PROVIGIL [Concomitant]
     Active Substance: MODAFINIL
  2. NUVIGIL [Concomitant]
     Active Substance: ARMODAFINIL
  3. MULTIVITAMIN [Concomitant]
     Active Substance: VITAMINS
  4. NUVARING [Concomitant]
     Active Substance: ETHINYL ESTRADIOL\ETONOGESTREL
  5. MAGNESIUM GLUCONATE [Concomitant]
     Active Substance: MAGNESIUM GLUCONATE
  6. PROZAC [Concomitant]
     Active Substance: FLUOXETINE HYDROCHLORIDE
  7. ALBUTEROL SULFATE. [Concomitant]
     Active Substance: ALBUTEROL SULFATE
  8. MONTELUKAST SODIUM. [Concomitant]
     Active Substance: MONTELUKAST SODIUM
  9. XYREM [Suspect]
     Active Substance: SODIUM OXYBATE
     Dosage: DOSE ADJUSTMENTS
     Route: 048
  10. BUSPAR [Concomitant]
     Active Substance: BUSPIRONE HYDROCHLORIDE
  11. WARFARIN SODIUM. [Concomitant]
     Active Substance: WARFARIN SODIUM
  12. AMETHYST [Concomitant]
     Active Substance: ETHINYL ESTRADIOL\LEVONORGESTREL
  13. ADDERALL [Concomitant]
     Active Substance: AMPHETAMINE ASPARTATE\AMPHETAMINE SULFATE\DEXTROAMPHETAMINE SACCHARATE\DEXTROAMPHETAMINE SULFATE
  14. FOLBIC [Concomitant]
     Active Substance: CYANOCOBALAMIN\FOLIC ACID\PYRIDOXINE
  15. TYLENOL [Concomitant]
     Active Substance: ACETAMINOPHEN
  16. VERAPAMIL [Concomitant]
     Active Substance: VERAPAMIL HYDROCHLORIDE
  17. FISH OIL [Concomitant]
     Active Substance: FISH OIL
  18. XYREM [Suspect]
     Active Substance: SODIUM OXYBATE
     Dosage: 4.5 G, BID
     Route: 048
     Dates: start: 201202
  19. FLUVOXAMINE [Concomitant]
     Active Substance: FLUVOXAMINE
  20. WELLBUTRIN [Concomitant]
     Active Substance: BUPROPION HYDROCHLORIDE
  21. LAMICTAL [Concomitant]
     Active Substance: LAMOTRIGINE
  22. ALLERGY [Concomitant]
     Active Substance: UNSPECIFIED INGREDIENT
  23. COUMADIN [Concomitant]
     Active Substance: WARFARIN SODIUM
  24. XYREM [Suspect]
     Active Substance: SODIUM OXYBATE
     Indication: NARCOLEPSY
     Dosage: 3 G, BID
     Route: 048
     Dates: start: 201109, end: 201110
  25. ZYRTEC [Suspect]
     Active Substance: CETIRIZINE HYDROCHLORIDE
     Indication: PRODUCT USED FOR UNKNOWN INDICATION
     Dosage: UNK
     Dates: end: 20160414
  26. SINGULAIR [Concomitant]
     Active Substance: MONTELUKAST SODIUM
  27. CALCIUM +D [Concomitant]
     Active Substance: CALCIUM\VITAMIN D
  28. AMITRIPTYLINE HCL [Concomitant]
     Active Substance: AMITRIPTYLINE

REACTIONS (5)
  - Drug ineffective [Unknown]
  - Somnolence [Unknown]
  - Condition aggravated [Unknown]
  - Sleep disorder [Unknown]
  - Activities of daily living impaired [Not Recovered/Not Resolved]
